FAERS Safety Report 7572688-8 (Version None)
Quarter: 2011Q2

REPORT INFORMATION
  Report Type: 
  Country: None (occurrence: None)
  Receive Date: 20110627
  Receipt Date: 20110617
  Transmission Date: 20111010
  Serious: Yes (Hospitalization, Other)
  Sender: FDA-Public Use
  Company Number: NL-AMGEN-NLDSP2011020846

PATIENT
  Age: 67 Year
  Sex: Male
  Weight: 100 kg

DRUGS (17)
  1. BUMETANIDE [Concomitant]
     Dosage: UNK
  2. ENBREL [Suspect]
     Indication: ANKYLOSING SPONDYLITIS
     Dosage: 50 MG, WEEKLY
     Dates: start: 20110207, end: 20110411
  3. FERROFUMARAT [Concomitant]
     Dosage: UNK
  4. FISH OIL [Concomitant]
     Dosage: UNK
  5. GLUCOSAMINE SULFATE [Concomitant]
     Dosage: UNK
  6. ENBREL [Suspect]
     Indication: PSORIATIC ARTHROPATHY
     Dosage: 50 MG, WEEKLY
     Dates: start: 20110502
  7. METFORMIN HCL [Concomitant]
     Dosage: UNK
  8. IRBESARTAN + HYDROCHLOROTHIAZIDE [Concomitant]
     Dosage: UNK
  9. AMIODARONE HCL [Concomitant]
     Dosage: UNK
  10. ARAVA [Concomitant]
     Dosage: UNK
  11. RESVERATROL [Concomitant]
     Dosage: UNK
  12. MELOXICAM [Concomitant]
     Dosage: UNK
  13. OMEPRAZOLE [Concomitant]
     Dosage: UNK
  14. LEVEMIR [Concomitant]
     Dosage: UNK
  15. INSULIN [Concomitant]
     Dosage: UNK
  16. CRESTOR [Concomitant]
     Dosage: UNK
  17. ACENOCOUMAROL [Concomitant]
     Dosage: UNK

REACTIONS (3)
  - CHONDROPATHY [None]
  - ARTHRALGIA [None]
  - OSTEOARTHRITIS [None]
